FAERS Safety Report 12800350 (Version 6)
Quarter: 2017Q2

REPORT INFORMATION
  Report Type: Report from Study
  Country: US (occurrence: US)
  Receive Date: 20160930
  Receipt Date: 20170427
  Transmission Date: 20170830
  Serious: Yes (Other)
  Sender: FDA-Public Use
  Company Number: US-SAOL THERAPEUTICS-2016SAO00379

PATIENT
  Age: 57 Year
  Sex: Female
  Weight: 90.7 kg

DRUGS (23)
  1. COMPOUNDED BACLOFEN [Suspect]
     Active Substance: BACLOFEN
     Dosage: 483.9 ?G, \DAY
     Route: 037
     Dates: start: 20151223, end: 20160205
  2. FENTANYL. [Suspect]
     Active Substance: FENTANYL
     Dosage: 292.4 ?G, \DAY
     Route: 037
     Dates: end: 20141205
  3. FENTANYL. [Suspect]
     Active Substance: FENTANYL
     Dosage: 307.6 ?G, \DAY
     Route: 037
     Dates: start: 20141205
  4. COMPOUNDED BACLOFEN [Suspect]
     Active Substance: BACLOFEN
     Indication: MUSCLE SPASTICITY
     Dosage: 389.9 ?G, \DAY
     Route: 037
     Dates: end: 20141205
  5. COMPOUNDED BACLOFEN [Suspect]
     Active Substance: BACLOFEN
     Dosage: 384.9 ?G, \DAY
     Route: 037
     Dates: start: 20151223, end: 20160205
  6. BUPIVACAINE. [Suspect]
     Active Substance: BUPIVACAINE
     Dosage: 0.349 MG, \DAY
     Route: 037
     Dates: start: 20160908
  7. FENTANYL. [Suspect]
     Active Substance: FENTANYL
     Dosage: 288.7 ?G, \DAY
     Route: 037
     Dates: start: 20151223, end: 20160205
  8. BUPIVACAINE. [Suspect]
     Active Substance: BUPIVACAINE
     Dosage: 2.420 MG, \DAY
     Route: 037
     Dates: start: 20151223, end: 20160205
  9. BUPIVACAINE. [Suspect]
     Active Substance: BUPIVACAINE
     Dosage: 2.319 MG, \DAY
     Route: 037
     Dates: start: 20160205
  10. FENTANYL. [Suspect]
     Active Substance: FENTANYL
     Dosage: 290.0 ?G, \DAY
     Route: 037
     Dates: start: 20160401
  11. BUPIVACAINE. [Suspect]
     Active Substance: BUPIVACAINE
     Dosage: 1.949 MG, \DAY
     Route: 037
     Dates: end: 20141205
  12. BUPIVACAINE. [Suspect]
     Active Substance: BUPIVACAINE
     Dosage: 1.824 MG, \DAY
     Route: 037
     Dates: start: 20160205
  13. COMPOUNDED BACLOFEN [Suspect]
     Active Substance: BACLOFEN
     Dosage: 410.2 ?G, \DAY
     Route: 037
     Dates: start: 20141205
  14. COMPOUNDED BACLOFEN [Suspect]
     Active Substance: BACLOFEN
     Dosage: 364.8 ?G, \DAY
     Route: 037
     Dates: start: 20160205
  15. FENTANYL. [Suspect]
     Active Substance: FENTANYL
     Dosage: 363.0 ?G, \DAY
     Route: 037
     Dates: start: 20151223, end: 20160205
  16. FENTANYL. [Suspect]
     Active Substance: FENTANYL
     Dosage: 273.6 ?G, \DAY
     Route: 037
     Dates: start: 20160205, end: 20160401
  17. COMPOUNDED BACLOFEN [Suspect]
     Active Substance: BACLOFEN
     Dosage: 463.9 ?G, \DAY
     Route: 037
     Dates: start: 20160205
  18. FENTANYL. [Suspect]
     Active Substance: FENTANYL
     Dosage: 347.9 ?G, \DAY
     Route: 037
     Dates: start: 20160205, end: 20160401
  19. FENTANYL. [Suspect]
     Active Substance: FENTANYL
     Dosage: 368.8 ?G, \DAY
     Route: 037
     Dates: start: 20160401
  20. BUPIVACAINE. [Suspect]
     Active Substance: BUPIVACAINE
     Dosage: 2.051 MG, \DAY
     Route: 037
     Dates: start: 20141205
  21. BUPIVACAINE. [Suspect]
     Active Substance: BUPIVACAINE
     Dosage: 1.925 MG, \DAY
     Route: 037
     Dates: start: 20151223, end: 20160205
  22. COMPOUNDED BACLOFEN [Suspect]
     Active Substance: BACLOFEN
     Indication: MUSCLE SPASTICITY
     Dosage: 69.9 ?G, \DAY
     Route: 037
     Dates: start: 20160908
  23. FENTANYL. [Suspect]
     Active Substance: FENTANYL
     Dosage: 55.61 ?G, \DAY
     Route: 037
     Dates: start: 20160908

REACTIONS (10)
  - Arthralgia [Not Recovered/Not Resolved]
  - Device damage [Recovered/Resolved]
  - Somnolence [Recovered/Resolved]
  - Wound dehiscence [Unknown]
  - Pain in extremity [Not Recovered/Not Resolved]
  - Implant site pain [Recovered/Resolved]
  - Discomfort [Recovered/Resolved]
  - Complication associated with device [Recovered/Resolved]
  - Implant site extravasation [Recovered/Resolved]
  - Device infusion issue [Recovered/Resolved]

NARRATIVE: CASE EVENT DATE: 20160519
